FAERS Safety Report 4448398-2 (Version None)
Quarter: 2004Q3

REPORT INFORMATION
  Report Type: 
  Country: None (occurrence: None)
  Receive Date: 20040909
  Receipt Date: 20040827
  Transmission Date: 20050211
  Serious: Yes (Hospitalization, Other)
  Sender: FDA-Public Use
  Company Number: STA-AE-04-MTX-303

PATIENT
  Age: 9 Year
  Sex: Female

DRUGS (13)
  1. METHOTREXATE [Suspect]
     Indication: JUVENILE ARTHRITIS
     Dosage: SEE IMAGE
     Route: 048
     Dates: start: 19980701, end: 19981001
  2. METHOTREXATE [Suspect]
     Indication: JUVENILE ARTHRITIS
     Dosage: SEE IMAGE
     Route: 048
     Dates: start: 19981001, end: 20010701
  3. METHOTREXATE [Suspect]
     Indication: JUVENILE ARTHRITIS
     Dosage: SEE IMAGE
     Route: 048
     Dates: start: 20010701, end: 20020301
  4. METHOTREXATE [Suspect]
     Indication: JUVENILE ARTHRITIS
     Dosage: SEE IMAGE
     Route: 048
     Dates: start: 20020301, end: 20030401
  5. METHOTREXATE [Suspect]
     Indication: JUVENILE ARTHRITIS
     Dosage: SEE IMAGE
     Route: 048
     Dates: start: 20030401
  6. ASPIRIN [Concomitant]
  7. PREDNISOLONE [Concomitant]
  8. PREDNISOLONE [Concomitant]
  9. SELBEX (TEPRENONE) [Concomitant]
  10. FERROMIA (FERROUS CITRATE) [Concomitant]
  11. CLINORIL [Concomitant]
  12. SODIUM AUROTHIOMALATE( SODIUM AUROTHIOMALATE) [Concomitant]
  13. BUCILLAMINE (BUCILLAMINE) [Concomitant]

REACTIONS (10)
  - ANAEMIA [None]
  - ARTHRALGIA [None]
  - EPSTEIN-BARR VIRUS INFECTION [None]
  - HODGKIN'S DISEASE NODULAR SCLEROSIS STAGE UNSPECIFIED [None]
  - LIVER DISORDER [None]
  - LYMPHOMA [None]
  - OSTEOPOROSIS [None]
  - PAIN EXACERBATED [None]
  - PYREXIA [None]
  - RASH [None]
